FAERS Safety Report 7387676-4 (Version None)
Quarter: 2011Q1

REPORT INFORMATION
  Report Type: 
  Country: None (occurrence: None)
  Receive Date: 20110331
  Receipt Date: 20101018
  Transmission Date: 20110831
  Serious: Yes (Hospitalization)
  Sender: FDA-Public Use
  Company Number: US-BAYER-201027802NA

PATIENT
  Sex: Female
  Weight: 83 kg

DRUGS (3)
  1. OCELLA [Suspect]
     Indication: ACNE
  2. OCELLA [Suspect]
     Indication: PREMENSTRUAL SYNDROME
  3. OCELLA [Suspect]
     Indication: CONTRACEPTION
     Dosage: UNK
     Dates: start: 20090611, end: 20091001

REACTIONS (4)
  - CHOLECYSTECTOMY [None]
  - ABDOMINAL PAIN UPPER [None]
  - VOMITING [None]
  - SCAR [None]
